FAERS Safety Report 7433262-7 (Version None)
Quarter: 2011Q2

REPORT INFORMATION
  Report Type: 
  Country: None (occurrence: None)
  Receive Date: 20110422
  Receipt Date: 20110405
  Transmission Date: 20111010
  Serious: Yes (Hospitalization)
  Sender: FDA-Public Use
  Company Number: FR-PFIZER INC-HQWYE064016DEC05

PATIENT
  Age: 89 Year
  Sex: Female

DRUGS (9)
  1. TRIATEC [Suspect]
     Indication: HYPERTENSIVE HEART DISEASE
     Dosage: 5.0 MG, 1X/DAY
     Route: 048
  2. DIFFU K [Concomitant]
     Route: 048
  3. SINTROM [Suspect]
     Indication: ATRIAL FIBRILLATION
     Dosage: 1.0 MG, 1X/DAY
     Route: 048
  4. LASIX [Suspect]
     Indication: HYPERTENSIVE HEART DISEASE
     Dosage: 40.0 MG, 1X/DAY
     Route: 048
     Dates: end: 20041215
  5. VASTAREL [Concomitant]
     Route: 048
  6. CORDARONE [Suspect]
     Indication: HYPERTENSIVE HEART DISEASE
     Dosage: 200.0 MG, 1X/DAY
     Route: 048
     Dates: end: 20041225
  7. AMLODIPINE BESYLATE [Suspect]
     Indication: HYPERTENSIVE HEART DISEASE
     Dosage: 10.0 MG, 1X/DAY
     Route: 048
  8. SINTROM [Suspect]
     Indication: ATRIAL FLUTTER
  9. DEROXAT [Suspect]
     Indication: DYSTHYMIC DISORDER
     Dosage: 20.0 MG, 1X/DAY
     Route: 048
     Dates: end: 20041212

REACTIONS (2)
  - PULMONARY FIBROSIS [None]
  - HYPONATRAEMIA [None]
